APPROVED DRUG PRODUCT: TURGEX
Active Ingredient: HEXACHLOROPHENE
Strength: 3%
Dosage Form/Route: AEROSOL;TOPICAL
Application: N018375 | Product #001
Applicant: XTTRIUM LABORATORIES INC
Approved: Approved Prior to Jan 1, 1982 | RLD: No | RS: No | Type: DISCN